FAERS Safety Report 4780240-2 (Version None)
Quarter: 2005Q3

REPORT INFORMATION
  Report Type: 
  Country: None (occurrence: None)
  Receive Date: 20050927
  Receipt Date: 20050916
  Transmission Date: 20060218
  Serious: Yes (Hospitalization)
  Sender: FDA-Public Use
  Company Number: CH-ROCHE-418098

PATIENT
  Age: 77 Year
  Sex: Male

DRUGS (8)
  1. TORSEMIDE [Suspect]
     Indication: DRUG USE FOR UNKNOWN INDICATION
     Dosage: FREQUENCY: 3
     Route: 048
     Dates: end: 20050621
  2. DIAMOX [Suspect]
     Dosage: ADDITIONAL INDICATION: POST-OPERATIVE MACULAR EDEMA.
     Route: 048
     Dates: start: 20050612, end: 20050621
  3. BLOPRESS [Suspect]
     Indication: DRUG USE FOR UNKNOWN INDICATION
     Route: 048
     Dates: end: 20050621
  4. GLUCOPHAGE [Suspect]
     Indication: DRUG USE FOR UNKNOWN INDICATION
     Route: 048
     Dates: end: 20050621
  5. SINTROM [Concomitant]
     Route: 048
  6. LESCOL [Concomitant]
     Route: 048
  7. STARLIX [Concomitant]
     Route: 048
  8. LOPRESSOR [Concomitant]
     Route: 048

REACTIONS (2)
  - METABOLIC ACIDOSIS [None]
  - RENAL FAILURE CHRONIC [None]
